FAERS Safety Report 8424352-0 (Version None)
Quarter: 2012Q2

REPORT INFORMATION
  Report Type: 
  Country: None (occurrence: None)
  Receive Date: 20120608
  Receipt Date: 20110929
  Transmission Date: 20120825
  Serious: No
  Sender: FDA-Public Use
  Company Number: US-ASTRAZENECA-2011SE58816

PATIENT
  Age: 80 Year
  Sex: Female
  Weight: 90.7 kg

DRUGS (6)
  1. LASIX [Concomitant]
     Indication: OEDEMA PERIPHERAL
  2. LOARATIM [Concomitant]
     Indication: BLOOD PRESSURE
  3. PRADAPA [Concomitant]
     Indication: ANTICOAGULANT THERAPY
  4. PULMICORT [Suspect]
     Indication: ASTHMA
     Dosage: 0.25 MG 2 ML BID
     Route: 055
     Dates: start: 20100801
  5. VERAPAMIL [Concomitant]
     Indication: BLOOD PRESSURE
  6. PROVAMNA [Concomitant]
     Indication: ASTHMA

REACTIONS (2)
  - VISION BLURRED [None]
  - DRY SKIN [None]
